FAERS Safety Report 5819379-9 (Version None)
Quarter: 2008Q3

REPORT INFORMATION
  Report Type: 
  Country: None (occurrence: None)
  Receive Date: 20080723
  Receipt Date: 20080714
  Transmission Date: 20090109
  Serious: Yes (Other)
  Sender: FDA-Public Use
  Company Number: IE-ASTRAZENECA-2008GB00443

PATIENT
  Age: 23167 Day
  Sex: Female

DRUGS (11)
  1. SEROQUEL [Suspect]
     Indication: AGITATED DEPRESSION
     Route: 048
     Dates: start: 20080104, end: 20080118
  2. MIRTAZAPINE [Concomitant]
  3. ZOLPIDEM [Concomitant]
  4. RISPERIDONE [Concomitant]
  5. SERTRALINE [Concomitant]
  6. CLONAZEPAM [Concomitant]
  7. CHROMIUM [Concomitant]
  8. CALOGEN [Concomitant]
  9. ENOXAPARIN SODIUM [Concomitant]
  10. CORSODYL [Concomitant]
     Dosage: W/V MINT MOUTHWASH
  11. VITAMIN B COMPLEX CAP [Concomitant]

REACTIONS (1)
  - NEUTROPENIA [None]
